FAERS Safety Report 17898666 (Version 2)
Quarter: 2021Q1

REPORT INFORMATION
  Report Type: Spontaneous
  Country: US (occurrence: US)
  Receive Date: 20200616
  Receipt Date: 20210325
  Transmission Date: 20210419
  Serious: Yes (Other)
  Sender: FDA-Public Use
  Company Number: US-SA-2020SA152730

PATIENT
  Age: 55 Year
  Sex: Female

DRUGS (3)
  1. CAPRELSA [Suspect]
     Active Substance: VANDETANIB
     Indication: THYROID CANCER
     Dosage: 300 MG, QD
     Route: 048
     Dates: start: 20180420
  2. CAPRELSA [Suspect]
     Active Substance: VANDETANIB
     Dosage: UNK
  3. AMOXICILLIN. [Suspect]
     Active Substance: AMOXICILLIN
     Indication: DACRYOSTENOSIS ACQUIRED
     Dosage: UNK
     Dates: start: 20210310

REACTIONS (2)
  - Pneumonia [Unknown]
  - Pruritus [Unknown]
